FAERS Safety Report 10146247 (Version 1)
Quarter: 2014Q2

REPORT INFORMATION
  Report Type: Spontaneous
  Country: US (occurrence: None)
  Receive Date: 20140430
  Receipt Date: 20140430
  Transmission Date: 20141212
  Serious: Yes (Hospitalization)
  Sender: FDA-Public Use
  Company Number: None

PATIENT
  Age: 65 Year
  Sex: Male

DRUGS (6)
  1. LORAZEPAM [Suspect]
     Indication: SEDATION
     Route: 042
     Dates: start: 20131110, end: 20131110
  2. LEVETIRACETAM [Concomitant]
  3. HALOPERIDOL [Concomitant]
  4. MAGNESIUM SULFATE [Concomitant]
  5. METOPROLOL [Concomitant]
  6. DIPHENHYDRAMINE [Concomitant]

REACTIONS (2)
  - Respiratory depression [None]
  - Respiratory rate increased [None]
